FAERS Safety Report 8722242 (Version 2)
Quarter: 2014Q2

REPORT INFORMATION
  Report Type: Report from Study
  Country: CA (occurrence: CA)
  Receive Date: 20120814
  Receipt Date: 20140626
  Transmission Date: 20141212
  Serious: Yes (Hospitalization)
  Sender: FDA-Public Use
  Company Number: CA-JNJFOC-20120804379

PATIENT
  Age: 47 Year
  Sex: Male
  Weight: 54.2 kg

DRUGS (3)
  1. REMICADE [Suspect]
     Indication: CROHN^S DISEASE
     Dosage: INFUSION NO 29 ON 18-JUN-2014.
     Route: 042
     Dates: start: 20140618
  2. REMICADE [Suspect]
     Indication: CROHN^S DISEASE
     Dosage: INFUSION NO 29 ON 18-JUN-2014.
     Route: 042
     Dates: start: 201009
  3. VITAMINS NOS [Concomitant]
     Route: 065

REACTIONS (4)
  - Proctocolectomy [Unknown]
  - Postoperative wound infection [Unknown]
  - Eczema [Not Recovered/Not Resolved]
  - Skin haemorrhage [Not Recovered/Not Resolved]
